FAERS Safety Report 13631818 (Version 1)
Quarter: 2017Q2

REPORT INFORMATION
  Report Type: Spontaneous
  Country: US (occurrence: US)
  Receive Date: 20170531
  Receipt Date: 20170531
  Transmission Date: 20170830
  Serious: No
  Sender: FDA-Public Use
  Company Number: US-ASTELLAS-1418055

PATIENT
  Sex: Female

DRUGS (8)
  1. BIOTIN [Concomitant]
     Active Substance: BIOTIN
  2. ATORVASTATIN [Concomitant]
     Active Substance: ATORVASTATIN
  3. TARCEVA [Suspect]
     Active Substance: ERLOTINIB HYDROCHLORIDE
     Route: 048
     Dates: start: 20120111
  4. VALSARTAN HCTZ [Concomitant]
     Active Substance: HYDROCHLOROTHIAZIDE\VALSARTAN
  5. MINOCYCLINE [Concomitant]
     Active Substance: MINOCYCLINE\MINOCYCLINE HYDROCHLORIDE
  6. NADOLOL. [Concomitant]
     Active Substance: NADOLOL
  7. DOXYCYCLINE. [Concomitant]
     Active Substance: DOXYCYCLINE
  8. TARCEVA [Suspect]
     Active Substance: ERLOTINIB HYDROCHLORIDE
     Indication: LUNG NEOPLASM MALIGNANT
     Route: 048
     Dates: start: 20111019

REACTIONS (12)
  - Irritability [Unknown]
  - Fatigue [Unknown]
  - Dry skin [Unknown]
  - Acne [Unknown]
  - Pruritus [Unknown]
  - Rash [Unknown]
  - Skin disorder [Unknown]
  - Peripheral swelling [Unknown]
  - Nail growth abnormal [Unknown]
  - Rash macular [Unknown]
  - Onychomalacia [Unknown]
  - Erythema [Unknown]
